FAERS Safety Report 8030026-0 (Version None)
Quarter: 2012Q1

REPORT INFORMATION
  Report Type: 
  Country: None (occurrence: None)
  Receive Date: 20120109
  Receipt Date: 20120104
  Transmission Date: 20120608
  Serious: Yes (Death, Other)
  Sender: FDA-Public Use
  Company Number: GB-BRISTOL-MYERS SQUIBB COMPANY-16227001

PATIENT
  Age: 74 Year
  Sex: Female
  Weight: 71 kg

DRUGS (10)
  1. ATORVASTATIN [Concomitant]
     Dosage: 1 DF:ATORVASTATIN 20 MG TABS AT NIGHT
  2. GLICLAZIDE [Concomitant]
     Dosage: 1 DF:GLICLAZIDE TABS 80MG,2 TABS IN MRNG AND 1.5 TABS IN EVENING
  3. OMEPRAZOLE [Concomitant]
     Dosage: 1 DF:1-2 CAPS OF OMEPRAZOLE
  4. GLYCERYL TRINITRATE [Concomitant]
     Dosage: GLYCERYL TRINITRATE SPRAY,LAST SPARY EXPIRE IN 2009 SO NEW DOSE ISSUE IN 11MAR10.
  5. VITAMIN B-12 [Concomitant]
     Dosage: VITAMIN B12 INJECTIONS
     Dates: start: 20100106
  6. ONGLYZA [Suspect]
     Indication: DIABETES MELLITUS
     Route: 048
     Dates: start: 20091127, end: 20100304
  7. CLOMIPRAMINE HCL CAPS 25 MG [Concomitant]
     Dosage: 1 DF:CLOMIPRAMINE HCL CAPS 25 MG
  8. LERCANIDIPINE [Concomitant]
     Dosage: 1 DF:LERCANIDIPINE HCL 10 MG 1 TABS DAILY
  9. ASPIRIN [Concomitant]
     Dosage: 1 DF:1 ASPIRIN ORAL DISPERSIBLE TABLET 75MG
  10. METFORMIN HCL [Concomitant]
     Dosage: 1 DF: 2 TABS OF METFORMIN HCL MODIFIED RELEASE 750MG TABS

REACTIONS (5)
  - ANAEMIA [None]
  - MYOCARDIAL INFARCTION [None]
  - ELECTROLYTE IMBALANCE [None]
  - GASTROOESOPHAGEAL REFLUX DISEASE [None]
  - CORONARY ARTERY DISEASE [None]
